FAERS Safety Report 11429917 (Version 1)
Quarter: 2015Q3

REPORT INFORMATION
  Report Type: Spontaneous
  Country: US (occurrence: US)
  Receive Date: 20150828
  Receipt Date: 20150828
  Transmission Date: 20151125
  Serious: No
  Sender: FDA-Public Use
  Company Number: US-ROCHE-1105939

PATIENT
  Sex: Female

DRUGS (3)
  1. TELAPREVIR [Suspect]
     Active Substance: TELAPREVIR
     Indication: HEPATITIS C
     Route: 065
     Dates: start: 20120821
  2. PEGASYS [Suspect]
     Active Substance: PEGINTERFERON ALFA-2A
     Indication: HEPATITIS C
     Route: 058
     Dates: start: 20120821
  3. RIBAVIRIN. [Suspect]
     Active Substance: RIBAVIRIN
     Indication: HEPATITIS C
     Route: 065
     Dates: start: 20120821

REACTIONS (13)
  - Influenza like illness [Unknown]
  - Decreased appetite [Unknown]
  - Drug dose omission [Unknown]
  - Pain [Unknown]
  - Dizziness [Unknown]
  - Depression [Unknown]
  - Chills [Unknown]
  - No adverse event [Unknown]
  - Pyrexia [Unknown]
  - Crying [Unknown]
  - Asthenia [Unknown]
  - Headache [Unknown]
  - Gastrointestinal tract irritation [Unknown]
